FAERS Safety Report 24658914 (Version 2)
Quarter: 2025Q3

REPORT INFORMATION
  Report Type: Spontaneous
  Country: CA (occurrence: CA)
  Receive Date: 20241125
  Receipt Date: 20250724
  Transmission Date: 20251021
  Serious: Yes (Other)
  Sender: DR REDDYS
  Company Number: None

PATIENT
  Age: 41 Year
  Sex: Male

DRUGS (33)
  1. ZOLEDRONIC ACID [Suspect]
     Active Substance: ZOLEDRONIC ACID
     Indication: Neoplasm malignant
     Route: 065
  2. ZOLEDRONIC ACID [Suspect]
     Active Substance: ZOLEDRONIC ACID
     Indication: Parathyroid tumour malignant
  3. ZOLEDRONIC ACID [Suspect]
     Active Substance: ZOLEDRONIC ACID
     Indication: Lung neoplasm
  4. ZOLEDRONIC ACID [Suspect]
     Active Substance: ZOLEDRONIC ACID
     Indication: Hepatic cancer
  5. CAPECITABINE [Suspect]
     Active Substance: CAPECITABINE
     Indication: Neoplasm malignant
     Route: 065
  6. CAPECITABINE [Suspect]
     Active Substance: CAPECITABINE
     Indication: Parathyroid tumour malignant
  7. CAPECITABINE [Suspect]
     Active Substance: CAPECITABINE
     Indication: Lung neoplasm
  8. CAPECITABINE [Suspect]
     Active Substance: CAPECITABINE
     Indication: Hepatic cancer
  9. CISPLATIN [Suspect]
     Active Substance: CISPLATIN
     Indication: Neoplasm malignant
     Route: 042
  10. CISPLATIN [Suspect]
     Active Substance: CISPLATIN
     Indication: Parathyroid tumour malignant
  11. CISPLATIN [Suspect]
     Active Substance: CISPLATIN
     Indication: Lung neoplasm
  12. CISPLATIN [Suspect]
     Active Substance: CISPLATIN
     Indication: Hepatic cancer
  13. DENOSUMAB [Suspect]
     Active Substance: DENOSUMAB
     Indication: Neoplasm malignant
     Route: 065
  14. DENOSUMAB [Suspect]
     Active Substance: DENOSUMAB
     Indication: Parathyroid tumour malignant
  15. DENOSUMAB [Suspect]
     Active Substance: DENOSUMAB
     Indication: Lung neoplasm
  16. DENOSUMAB [Suspect]
     Active Substance: DENOSUMAB
     Indication: Hepatic cancer
  17. ETOPOSIDE [Suspect]
     Active Substance: ETOPOSIDE
     Indication: Neoplasm malignant
     Route: 065
  18. ETOPOSIDE [Suspect]
     Active Substance: ETOPOSIDE
     Indication: Parathyroid tumour malignant
  19. ETOPOSIDE [Suspect]
     Active Substance: ETOPOSIDE
     Indication: Lung neoplasm
  20. ETOPOSIDE [Suspect]
     Active Substance: ETOPOSIDE
     Indication: Hepatic cancer
  21. SORAFENIB [Suspect]
     Active Substance: SORAFENIB
     Indication: Neoplasm malignant
     Route: 065
  22. SORAFENIB [Suspect]
     Active Substance: SORAFENIB
     Indication: Parathyroid tumour malignant
  23. SORAFENIB [Suspect]
     Active Substance: SORAFENIB
     Indication: Lung neoplasm
  24. SORAFENIB [Suspect]
     Active Substance: SORAFENIB
     Indication: Hepatic cancer
  25. TEMOZOLOMIDE [Suspect]
     Active Substance: TEMOZOLOMIDE
     Indication: Neoplasm malignant
     Route: 065
  26. TEMOZOLOMIDE [Suspect]
     Active Substance: TEMOZOLOMIDE
     Indication: Parathyroid tumour malignant
  27. TEMOZOLOMIDE [Suspect]
     Active Substance: TEMOZOLOMIDE
     Indication: Lung neoplasm
  28. TEMOZOLOMIDE [Suspect]
     Active Substance: TEMOZOLOMIDE
     Indication: Hepatic cancer
  29. NEXAVAR [Suspect]
     Active Substance: SORAFENIB
     Indication: Neoplasm malignant
     Route: 065
  30. NEXAVAR [Suspect]
     Active Substance: SORAFENIB
     Indication: Parathyroid tumour malignant
  31. NEXAVAR [Suspect]
     Active Substance: SORAFENIB
     Indication: Lung neoplasm
  32. NEXAVAR [Suspect]
     Active Substance: SORAFENIB
     Indication: Hepatic cancer
  33. CAPECITABINE [Suspect]
     Active Substance: CAPECITABINE
     Indication: Parathyroid tumour malignant
     Route: 065

REACTIONS (12)
  - Metastases to liver [Unknown]
  - Metastases to lung [Unknown]
  - Metastasis [Unknown]
  - Metastases to lymph nodes [Unknown]
  - Metastases to peritoneum [Unknown]
  - Neoplasm malignant [Unknown]
  - Malignant neoplasm progression [Unknown]
  - Blood bilirubin increased [Unknown]
  - Diarrhoea [Unknown]
  - Product use in unapproved indication [Unknown]
  - Hepatic encephalopathy [Unknown]
  - Parathyroid tumour malignant [Unknown]
